FAERS Safety Report 18808455 (Version 1)
Quarter: 2021Q1

REPORT INFORMATION
  Report Type: Spontaneous
  Country: US (occurrence: US)
  Receive Date: 20210129
  Receipt Date: 20210129
  Transmission Date: 20210419
  Serious: Yes (Life-Threatening, Disabling, Other)
  Sender: FDA-Public Use
  Company Number: None

PATIENT
  Age: 35 Year
  Sex: Female
  Weight: 85.5 kg

DRUGS (2)
  1. DULOXETINE. [Suspect]
     Active Substance: DULOXETINE
     Indication: OFF LABEL USE
     Dosage: ?          QUANTITY:1 CAPSULE(S);OTHER FREQUENCY:2 IN AM/ 1 IN PM;?
     Route: 048
     Dates: start: 20181119, end: 20200602
  2. DULOXETINE. [Suspect]
     Active Substance: DULOXETINE
     Indication: NEURALGIA
     Dosage: ?          QUANTITY:1 CAPSULE(S);OTHER FREQUENCY:2 IN AM/ 1 IN PM;?
     Route: 048
     Dates: start: 20181119, end: 20200602

REACTIONS (11)
  - Heart rate decreased [None]
  - Pain [None]
  - Dyspnoea [None]
  - Liver injury [None]
  - Cardiovascular disorder [None]
  - Chest discomfort [None]
  - Serotonin syndrome [None]
  - Multi-organ disorder [None]
  - Cough [None]
  - Circulatory collapse [None]
  - Muscle injury [None]

NARRATIVE: CASE EVENT DATE: 20200413
